FAERS Safety Report 14213185 (Version 1)
Quarter: 2017Q4

REPORT INFORMATION
  Report Type: Other
  Country: IT (occurrence: IT)
  Receive Date: 20171122
  Receipt Date: 20171122
  Transmission Date: 20180321
  Serious: Yes (Hospitalization)
  Sender: FDA-Public Use
  Company Number: IT-ATLAS PHARMACEUTICALS, LLC-2034855

PATIENT
  Age: 41 Year
  Sex: Male

DRUGS (5)
  1. VALSARTAN. [Concomitant]
     Active Substance: VALSARTAN
     Route: 065
  2. METFORMIN [Suspect]
     Active Substance: METFORMIN HYDROCHLORIDE
     Indication: TYPE 2 DIABETES MELLITUS
     Route: 065
  3. SITAGLIPTIN [Concomitant]
     Active Substance: SITAGLIPTIN
     Route: 065
  4. OMEPRAZOLE. [Concomitant]
     Active Substance: OMEPRAZOLE
     Route: 065
  5. BISOPROLOL FUMARATE. [Concomitant]
     Active Substance: BISOPROLOL FUMARATE
     Route: 065

REACTIONS (2)
  - Wernicke^s encephalopathy [Recovering/Resolving]
  - Hypomagnesaemia [Recovering/Resolving]
